FAERS Safety Report 12215811 (Version 1)
Quarter: 2016Q1

REPORT INFORMATION
  Report Type: Report from Study
  Country: CO (occurrence: CO)
  Receive Date: 20160328
  Receipt Date: 20160328
  Transmission Date: 20160526
  Serious: Yes (Death, Hospitalization)
  Sender: FDA-Public Use
  Company Number: CO-ABBVIE-16P-036-1593407-00

PATIENT
  Age: 60 Year
  Sex: Male
  Weight: 65 kg

DRUGS (1)
  1. ZEMPLAR [Suspect]
     Active Substance: PARICALCITOL
     Indication: HYPERPARATHYROIDISM SECONDARY
     Route: 042
     Dates: start: 20150925, end: 20151029

REACTIONS (5)
  - Nosocomial infection [Fatal]
  - Infarction [Fatal]
  - Cardiac disorder [Fatal]
  - Sepsis [Fatal]
  - Disorientation [Unknown]

NARRATIVE: CASE EVENT DATE: 20160303
